FAERS Safety Report 21514263 (Version 1)
Quarter: 2022Q4

REPORT INFORMATION
  Report Type: Spontaneous
  Country: CN (occurrence: CN)
  Receive Date: 20221027
  Receipt Date: 20221027
  Transmission Date: 20230113
  Serious: Yes (Other)
  Sender: FDA-Public Use
  Company Number: CN-PFIZER INC-PV202200081809

PATIENT
  Age: 27 Year
  Sex: Male

DRUGS (11)
  1. EPIRUBICIN HYDROCHLORIDE [Suspect]
     Active Substance: EPIRUBICIN HYDROCHLORIDE
     Indication: Chemotherapy
     Dosage: D1, Q3W
     Dates: start: 201907
  2. EPIRUBICIN HYDROCHLORIDE [Suspect]
     Active Substance: EPIRUBICIN HYDROCHLORIDE
     Indication: Desmoplastic small round cell tumour
  3. CATEQUENTINIB [Suspect]
     Active Substance: CATEQUENTINIB
     Indication: Desmoplastic small round cell tumour
     Dosage: 12 MG, 1X/DAY (2-WEEK ON/1-WEEK OFF)
     Dates: start: 201907
  4. CATEQUENTINIB [Suspect]
     Active Substance: CATEQUENTINIB
     Dosage: 8 MG, 1X/DAY (2-WEEK ON/1-WEEK OFF)
  5. CATEQUENTINIB [Suspect]
     Active Substance: CATEQUENTINIB
     Dosage: 8 MG, 1X/DAY (1-WEEK ON/1- WEEK OFF)
  6. IFOSFAMIDE [Suspect]
     Active Substance: IFOSFAMIDE
     Indication: Chemotherapy
     Dosage: D1-5, Q3W
     Dates: start: 201907
  7. IFOSFAMIDE [Suspect]
     Active Substance: IFOSFAMIDE
     Indication: Desmoplastic small round cell tumour
  8. MESNA [Suspect]
     Active Substance: MESNA
     Indication: Chemotherapy
     Dosage: D1-5, Q3W
  9. MESNA [Suspect]
     Active Substance: MESNA
     Indication: Desmoplastic small round cell tumour
  10. VINCRISTINE [Suspect]
     Active Substance: VINCRISTINE
     Indication: Chemotherapy
     Dosage: D1 Q3W
     Dates: start: 201907
  11. VINCRISTINE [Suspect]
     Active Substance: VINCRISTINE
     Indication: Desmoplastic small round cell tumour

REACTIONS (1)
  - Haematochezia [Recovered/Resolved]
